FAERS Safety Report 7705291-7 (Version None)
Quarter: 2011Q3

REPORT INFORMATION
  Report Type: 
  Country: None (occurrence: None)
  Receive Date: 20110818
  Receipt Date: 20110802
  Transmission Date: 20111222
  Serious: Yes (Life-Threatening, Hospitalization)
  Sender: FDA-Public Use
  Company Number: 2011MA010848

PATIENT
  Age: 26 Year
  Sex: Male
  Weight: 60 kg

DRUGS (12)
  1. PROMETHAZINE [Suspect]
     Indication: NASAL OPERATION
     Dosage: 25 MG; IV
     Route: 042
  2. PROMETHAZINE [Suspect]
     Indication: ANALGESIC THERAPY
     Dosage: 25 MG; IV
     Route: 042
  3. PROMETHAZINE [Suspect]
     Indication: SEDATIVE THERAPY
     Dosage: 25 MG; IV
     Route: 042
  4. ONDANSETRON [Suspect]
     Indication: NASAL OPERATION
     Dosage: 4 MG; IV
     Route: 042
  5. EPINEPHRINE [Suspect]
     Indication: NASAL SEPTAL OPERATION
     Dosage: 4 MG; NASAL
     Route: 045
  6. LIDOCAINE [Suspect]
     Indication: NASAL OPERATION
     Dosage: 30 ML 4% ; NAS
     Route: 045
  7. LIDOCAINE [Suspect]
     Indication: NASAL SEPTAL OPERATION
     Dosage: 30 ML 4% ; NAS
     Route: 045
  8. LIDOCAINE [Suspect]
     Indication: VENTRICULAR TACHYCARDIA
     Dosage: 30 ML 4% ; NAS
     Route: 045
  9. RANITIDINE [Suspect]
     Indication: NASAL OPERATION
     Dosage: 50 MG; IV
     Route: 042
  10. PENTAZOCINE LACTATE [Suspect]
     Indication: NASAL OPERATION
     Dosage: 30 MG; IV
     Route: 042
  11. ATROPINE [Suspect]
     Indication: PREOPERATIVE CARE
     Dosage: 0.6 MG; IM
     Route: 030
  12. MIDAZOLAM HCL [Suspect]
     Indication: SEDATIVE THERAPY
     Dosage: 1 MG; IV
     Route: 042

REACTIONS (5)
  - VENTRICULAR TACHYCARDIA [None]
  - VENTRICULAR EXTRASYSTOLES [None]
  - CARDIO-RESPIRATORY ARREST [None]
  - BLOOD PRESSURE INCREASED [None]
  - UNRESPONSIVE TO STIMULI [None]
